FAERS Safety Report 5314898-6 (Version None)
Quarter: 2007Q2

REPORT INFORMATION
  Report Type: 
  Country: None (occurrence: None)
  Receive Date: 20070502
  Receipt Date: 20070420
  Transmission Date: 20071010
  Serious: Yes (Other)
  Sender: FDA-Public Use
  Company Number: AU-ROCHE-406257

PATIENT
  Age: 27 Year
  Sex: Male
  Weight: 80 kg

DRUGS (1)
  1. ROACCUTANE [Suspect]
     Indication: ACNE
     Dosage: DISCONTINUED PRIOR TO JANUARY 1999
     Route: 048
     Dates: start: 19960101, end: 19990101

REACTIONS (5)
  - DEPRESSION [None]
  - FEELING ABNORMAL [None]
  - PHOTOSENSITIVITY REACTION [None]
  - PSYCHOTIC DISORDER [None]
  - SCHIZOPHRENIA [None]
